FAERS Safety Report 5640688-0 (Version None)
Quarter: 2008Q1

REPORT INFORMATION
  Report Type: 
  Country: None (occurrence: None)
  Receive Date: 20080226
  Receipt Date: 20080226
  Transmission Date: 20080703
  Serious: No
  Sender: FDA-Public Use
  Company Number: None

PATIENT

DRUGS (2)
  1. BREVITAL SODIUM [Suspect]
  2. BREVIBLOC [Suspect]
     Dosage: INJECTABLE

REACTIONS (2)
  - INTERCEPTED MEDICATION ERROR [None]
  - MEDICATION ERROR [None]
